FAERS Safety Report 5412569-9 (Version None)
Quarter: 2007Q3

REPORT INFORMATION
  Report Type: 
  Country: None (occurrence: None)
  Receive Date: 20070713
  Receipt Date: 20070424
  Transmission Date: 20080115
  Serious: Yes (Hospitalization, Other)
  Sender: FDA-Public Use
  Company Number: US-JNJFOC-20060905182

PATIENT
  Age: 36 Year
  Sex: Female
  Weight: 89.8 kg

DRUGS (5)
  1. ORTHO EVRA [Suspect]
     Indication: DRUG USE FOR UNKNOWN INDICATION
     Dosage: 1 DOSE(S), 3 IN 4 WEEKS, TRANSDERMAL
     Route: 062
     Dates: start: 20050505, end: 20050618
  2. ZITHROMAX [Concomitant]
  3. DARVOCET [Concomitant]
  4. ATIVAN [Concomitant]
  5. ALEVE [Concomitant]

REACTIONS (1)
  - PULMONARY EMBOLISM [None]
